FAERS Safety Report 25435068 (Version 1)
Quarter: 2025Q2

REPORT INFORMATION
  Report Type: Spontaneous
  Country: AU (occurrence: AU)
  Receive Date: 20250613
  Receipt Date: 20250613
  Transmission Date: 20250716
  Serious: Yes (Other)
  Sender: JOHNSON AND JOHNSON
  Company Number: AU-JNJFOC-20250609935

PATIENT

DRUGS (1)
  1. EVITHROM [Suspect]
     Active Substance: HUMAN THROMBIN
     Indication: Craniotomy
     Route: 065

REACTIONS (1)
  - Thrombosis [Unknown]
